FAERS Safety Report 11628582 (Version 1)
Quarter: 2015Q4

REPORT INFORMATION
  Report Type: Spontaneous
  Country: US (occurrence: None)
  Receive Date: 20151013
  Receipt Date: 20151013
  Transmission Date: 20160304
  Serious: Yes (Hospitalization)
  Sender: FDA-Public Use
  Company Number: None

PATIENT
  Age: 27 Year
  Sex: Male
  Weight: 79.4 kg

DRUGS (3)
  1. CYCLOPHOSPHAMIDE. [Suspect]
     Active Substance: CYCLOPHOSPHAMIDE
     Dates: end: 20150925
  2. VINCRISTINE SULFATE. [Suspect]
     Active Substance: VINCRISTINE SULFATE
     Dates: end: 20150925
  3. DOXORUBICIN HYDROCHLORIDE. [Suspect]
     Active Substance: DOXORUBICIN HYDROCHLORIDE
     Dates: end: 20150926

REACTIONS (8)
  - Colitis [None]
  - Procedural hypotension [None]
  - Colonic abscess [None]
  - Gastrointestinal haemorrhage [None]
  - Post procedural haemorrhage [None]
  - Wound [None]
  - Sepsis [None]
  - Pulmonary embolism [None]

NARRATIVE: CASE EVENT DATE: 20151005
